FAERS Safety Report 4557599-4 (Version None)
Quarter: 2005Q1

REPORT INFORMATION
  Report Type: 
  Country: None (occurrence: None)
  Receive Date: 20050120
  Receipt Date: 20041116
  Transmission Date: 20050727
  Serious: Yes (Hospitalization)
  Sender: FDA-Public Use
  Company Number: FR-MERCK-0411FRA00047

PATIENT
  Age: 82 Year
  Sex: Male

DRUGS (2)
  1. VIOXX [Suspect]
     Route: 048
     Dates: start: 20040515, end: 20040930
  2. CELECOXIB [Suspect]
     Route: 048
     Dates: start: 20041001, end: 20041014

REACTIONS (2)
  - MYOCARDIAL INFARCTION [None]
  - STEVENS-JOHNSON SYNDROME [None]
